FAERS Safety Report 7990891-X (Version None)
Quarter: 2011Q4

REPORT INFORMATION
  Report Type: 
  Country: None (occurrence: None)
  Receive Date: 20111219
  Receipt Date: 20111209
  Transmission Date: 20120403
  Serious: Yes (Hospitalization)
  Sender: FDA-Public Use
  Company Number: US-ELI_LILLY_AND_COMPANY-US201112003238

PATIENT
  Sex: Male

DRUGS (9)
  1. METOPROLOL [Concomitant]
  2. ASPIRIN [Concomitant]
  3. SPIRONOLACTONE [Concomitant]
  4. ATIVAN [Concomitant]
  5. LASIX [Concomitant]
  6. PRAVASTATIN [Concomitant]
  7. EFFIENT [Suspect]
     Indication: CARDIAC OPERATION
     Dosage: 10 MG, UNK
     Dates: start: 20111101
  8. METFORMIN HCL [Concomitant]
  9. LISINOPRIL [Concomitant]

REACTIONS (6)
  - FEELING ABNORMAL [None]
  - CARDIAC FAILURE CONGESTIVE [None]
  - NAUSEA [None]
  - ASTHENIA [None]
  - ABDOMINAL DISTENSION [None]
  - INSOMNIA [None]
